FAERS Safety Report 11952191 (Version 1)
Quarter: 2016Q1

REPORT INFORMATION
  Report Type: Spontaneous
  Country: US (occurrence: None)
  Receive Date: 20160122
  Receipt Date: 20160122
  Transmission Date: 20160526
  Serious: Yes (Other)
  Sender: FDA-Public Use
  Company Number: None

PATIENT
  Age: 62 Year
  Sex: Female
  Weight: 77.11 kg

DRUGS (14)
  1. TANZEUM [Suspect]
     Active Substance: ALBIGLUTIDE
     Indication: DIABETES MELLITUS INADEQUATE CONTROL
     Route: 058
  2. TRICOR [Concomitant]
     Active Substance: FENOFIBRATE
  3. LEVOTHYROXINE SODIUM. [Concomitant]
     Active Substance: LEVOTHYROXINE SODIUM
  4. TANZEUM PEN-INJECTOR [Concomitant]
  5. DIOVAN [Concomitant]
     Active Substance: VALSARTAN
  6. LEVEMIR [Concomitant]
     Active Substance: INSULIN DETEMIR
  7. PEN NEEDLES [Concomitant]
  8. NOVOFINE [Concomitant]
     Active Substance: INSULIN NOS
  9. AMLODIPINE BESYLATE. [Concomitant]
     Active Substance: AMLODIPINE BESYLATE
  10. LITHIUM CARBONATE. [Concomitant]
     Active Substance: LITHIUM CARBONATE
  11. METAMUCIL [Concomitant]
     Active Substance: PLANTAGO SEED
  12. ONE TOUCH ULTRA TEST STRIPS [Concomitant]
  13. ZETIA [Concomitant]
     Active Substance: EZETIMIBE
  14. ULTRAM [Concomitant]
     Active Substance: TRAMADOL HYDROCHLORIDE

REACTIONS (3)
  - Lipase abnormal [None]
  - Back pain [None]
  - Product substitution issue [None]

NARRATIVE: CASE EVENT DATE: 20151120
